FAERS Safety Report 23073373 (Version 1)
Quarter: 2023Q4

REPORT INFORMATION
  Report Type: Spontaneous
  Country: PT (occurrence: PT)
  Receive Date: 20231017
  Receipt Date: 20231017
  Transmission Date: 20240110
  Serious: Yes (Other)
  Sender: FDA-Public Use
  Company Number: PT-CELLTRION INC.-2023PT020132

PATIENT

DRUGS (4)
  1. INFLIXIMAB [Suspect]
     Active Substance: INFLIXIMAB
     Indication: Colitis ulcerative
  2. TACROLIMUS [Concomitant]
     Active Substance: TACROLIMUS
     Dosage: 24 MONTHS (8-44)
  3. VEDOLIZUMAB [Concomitant]
     Active Substance: VEDOLIZUMAB
     Dosage: 24 MONTHS (8-44)
  4. TOFACITINIB [Concomitant]
     Active Substance: TOFACITINIB
     Dosage: 24 MONTHS (8-44).

REACTIONS (2)
  - Haematochezia [Unknown]
  - Weight decreased [Unknown]
